FAERS Safety Report 4849889-2 (Version None)
Quarter: 2005Q4

REPORT INFORMATION
  Report Type: 
  Country: None (occurrence: None)
  Receive Date: 20051115
  Receipt Date: 20050726
  Transmission Date: 20060501
  Serious: Yes (Other)
  Sender: FDA-Public Use
  Company Number: 410733

PATIENT
  Age: 45 Year
  Sex: Male

DRUGS (3)
  1. PEGASYS [Suspect]
     Indication: HEPATITIS C
     Dosage: 180 MCG 1 PER 1 WEEK SUBCUTANEOUS
     Route: 058
     Dates: start: 20050326, end: 20050704
  2. COPEGUS [Suspect]
     Indication: HEPATITIS C
     Dosage: 600 MG 2 PER 1 DAY ORAL
     Route: 048
     Dates: start: 20050326
  3. AMBIEN [Concomitant]

REACTIONS (9)
  - ANXIETY [None]
  - DEPRESSION [None]
  - DYSPNOEA [None]
  - INSOMNIA [None]
  - IRRITABILITY [None]
  - MOOD ALTERED [None]
  - MYALGIA [None]
  - NERVOUSNESS [None]
  - WHITE BLOOD CELL COUNT DECREASED [None]
